FAERS Safety Report 16893725 (Version 3)
Quarter: 2019Q4

REPORT INFORMATION
  Report Type: Spontaneous
  Country: US (occurrence: US)
  Receive Date: 20191008
  Receipt Date: 20191014
  Transmission Date: 20200122
  Serious: Yes (Other)
  Sender: FDA-Public Use
  Company Number: US-PFIZER INC-2019408862

PATIENT
  Age: 54 Year
  Sex: Male
  Weight: 74.83 kg

DRUGS (1)
  1. LYRICA [Suspect]
     Active Substance: PREGABALIN
     Dosage: 300 MG, TWICE A DAY
     Route: 048
     Dates: start: 2017, end: 201901

REACTIONS (1)
  - Withdrawal syndrome [Unknown]

NARRATIVE: CASE EVENT DATE: 201901
